FAERS Safety Report 8057134-2 (Version None)
Quarter: 2012Q1

REPORT INFORMATION
  Report Type: 
  Country: None (occurrence: None)
  Receive Date: 20120119
  Receipt Date: 20120118
  Transmission Date: 20120608
  Serious: Yes (Other)
  Sender: FDA-Public Use
  Company Number: US-PFIZER INC-2012015071

PATIENT
  Sex: Female
  Weight: 68 kg

DRUGS (3)
  1. SYNTHROID [Concomitant]
     Indication: HYPOTHYROIDISM
     Dosage: UNK
  2. CHANTIX [Suspect]
     Indication: SMOKING CESSATION THERAPY
     Dosage: 0.5 MG, 1X/DAY
     Route: 048
     Dates: start: 20120112, end: 20120101
  3. CHANTIX [Suspect]
     Dosage: 0.5 MG, 2X/DAY
     Route: 048
     Dates: start: 20120101, end: 20120118

REACTIONS (7)
  - SUICIDAL IDEATION [None]
  - ANGER [None]
  - HALLUCINATION [None]
  - ANXIETY [None]
  - AGGRESSION [None]
  - DEPRESSION [None]
  - CONFUSIONAL STATE [None]
